FAERS Safety Report 18284375 (Version 1)
Quarter: 2020Q3

REPORT INFORMATION
  Report Type: Report from Study
  Country: MX (occurrence: MX)
  Receive Date: 20200918
  Receipt Date: 20200918
  Transmission Date: 20201103
  Serious: Yes (Death)
  Sender: FDA-Public Use
  Company Number: NVSC2020MX254964

PATIENT
  Age: 99 Year
  Sex: Female

DRUGS (1)
  1. DIOVAN [Suspect]
     Active Substance: VALSARTAN
     Indication: BLOOD PRESSURE ABNORMAL
     Dosage: 1 DF, QD (80, NO UNITS PROVIDED)
     Route: 048

REACTIONS (2)
  - Eating disorder [Fatal]
  - Asthenia [Fatal]

NARRATIVE: CASE EVENT DATE: 20200913
